FAERS Safety Report 8042772-3 (Version None)
Quarter: 2011Q4

REPORT INFORMATION
  Report Type: 
  Country: None (occurrence: None)
  Receive Date: 20111209
  Receipt Date: 20111128
  Transmission Date: 20120403
  Serious: Yes (Hospitalization)
  Sender: FDA-Public Use
  Company Number: SPV1-2011-00105

PATIENT
  Age: 22 Month
  Sex: Female

DRUGS (3)
  1. BUPROPION HYDROCHLORIDE [Suspect]
  2. ADDERALL 10 [Suspect]
  3. METHAMPHETAMINE HYDROCHLORIDE [Suspect]

REACTIONS (1)
  - GRAND MAL CONVULSION [None]
